FAERS Safety Report 20540476 (Version 1)
Quarter: 2022Q1

REPORT INFORMATION
  Report Type: Spontaneous
  Country: US (occurrence: US)
  Receive Date: 20220302
  Receipt Date: 20220302
  Transmission Date: 20220423
  Serious: Yes (Other)
  Sender: FDA-Public Use
  Company Number: US-JNJFOC-20211131853

PATIENT
  Age: 21 Year
  Sex: Male

DRUGS (1)
  1. REMICADE [Suspect]
     Active Substance: INFLIXIMAB
     Indication: Inflammatory bowel disease
     Dosage: SEMI MONTHLY
     Route: 042

REACTIONS (4)
  - IgA nephropathy [Unknown]
  - Focal segmental glomerulosclerosis [Unknown]
  - Off label use [Unknown]
  - Product use issue [Unknown]
